FAERS Safety Report 6356057-4 (Version None)
Quarter: 2009Q3

REPORT INFORMATION
  Report Type: 
  Country: None (occurrence: None)
  Receive Date: 20090914
  Receipt Date: 20090914
  Transmission Date: 20100115
  Serious: Yes (Other)
  Sender: FDA-Public Use
  Company Number: None

PATIENT
  Age: 7 Year
  Sex: Male
  Weight: 22.6799 kg

DRUGS (3)
  1. CLONIDINE [Suspect]
     Indication: AGGRESSION
     Dosage: ONE PATCH APPLY WEEKLY TOP
     Route: 061
     Dates: start: 20090901, end: 20090902
  2. CLONIDINE [Suspect]
     Indication: ATTENTION DEFICIT/HYPERACTIVITY DISORDER
     Dosage: ONE PATCH APPLY WEEKLY TOP
     Route: 061
     Dates: start: 20090901, end: 20090902
  3. CLONIDINE [Suspect]
     Indication: POST-TRAUMATIC STRESS DISORDER
     Dosage: ONE PATCH APPLY WEEKLY TOP
     Route: 061
     Dates: start: 20090901, end: 20090902

REACTIONS (4)
  - AGGRESSION [None]
  - DEVICE ADHESION ISSUE [None]
  - DRUG DELIVERY SYSTEM MALFUNCTION [None]
  - PRODUCT SUBSTITUTION ISSUE [None]
